FAERS Safety Report 15448642 (Version 2)
Quarter: 2018Q4

REPORT INFORMATION
  Report Type: Spontaneous
  Country: US (occurrence: US)
  Receive Date: 20180929
  Receipt Date: 20181031
  Transmission Date: 20190204
  Serious: Yes (Other)
  Sender: FDA-Public Use
  Company Number: US-SA-2018SA266554

PATIENT
  Age: 46 Year
  Sex: Female
  Weight: 82.55 kg

DRUGS (27)
  1. DECADRON [DEXAMETHASONE] [Concomitant]
     Dosage: 2 DF, UNK
     Route: 048
  2. IBUPROFEN. [Concomitant]
     Active Substance: IBUPROFEN
     Dosage: 200 MG, UNK
     Route: 048
  3. NOLVADEX [TAMOXIFEN] [Concomitant]
     Dosage: 10 MG, QD
     Route: 048
     Dates: start: 20120911, end: 20131014
  4. TAXOTERE [Suspect]
     Active Substance: DOCETAXEL
     Dosage: 150 MG, Q3W
     Route: 042
     Dates: start: 20120711, end: 20120711
  5. ERGOCALCIFEROL. [Concomitant]
     Active Substance: ERGOCALCIFEROL
     Dosage: UNK UNK, UNK
     Route: 048
     Dates: start: 20120301, end: 20120509
  6. DILAUDID [Concomitant]
     Active Substance: HYDROMORPHONE HYDROCHLORIDE
     Dosage: 2 MG, UNK
  7. LOVENOX [Concomitant]
     Active Substance: ENOXAPARIN SODIUM
     Dosage: UNK UNK, UNK
     Route: 065
  8. TAXOTERE [Suspect]
     Active Substance: DOCETAXEL
     Indication: BREAST CANCER
     Dosage: 150 MG, Q3W
     Route: 042
     Dates: start: 20120327, end: 20120327
  9. ALLEGRA [Concomitant]
     Active Substance: FEXOFENADINE HYDROCHLORIDE
     Dosage: UNK UNK, UNK
     Route: 048
  10. METHOTREXATE SODIUM. [Concomitant]
     Active Substance: METHOTREXATE SODIUM
     Dosage: UNK UNK, UNK
     Route: 048
  11. KEFLEX [CEFALEXIN] [Concomitant]
     Dosage: 250 MG, UNK
     Route: 048
  12. FLEXERIL [CYCLOBENZAPRINE HYDROCHLORIDE] [Concomitant]
     Dosage: 10 MG, TID
     Route: 048
  13. TYLENOL PM [Concomitant]
     Active Substance: ACETAMINOPHEN\DIPHENHYDRAMINE
     Dosage: 2 DF, QD
     Route: 048
  14. ZOFRAN [ONDANSETRON HYDROCHLORIDE] [Concomitant]
     Indication: NAUSEA
     Dosage: 1 DF, BID
     Route: 048
     Dates: start: 20120326, end: 20130325
  15. PLAQUENIL [HYDROXYCHLOROQUINE PHOSPHATE] [Concomitant]
     Active Substance: HYDROXYCHLOROQUINE DIPHOSPHATE
     Dosage: UNK UNK, UNK
     Route: 048
  16. NOLVADEX [TAMOXIFEN] [Concomitant]
     Dosage: 20 MG, QD
     Route: 048
     Dates: start: 20120711, end: 20120911
  17. PARAPLATIN [Concomitant]
     Active Substance: CARBOPLATIN
     Dosage: UNK UNK, UNK
     Route: 065
  18. COLACE [Concomitant]
     Active Substance: DOCUSATE SODIUM
     Dosage: 2 DF, QD
     Route: 048
     Dates: start: 20120301, end: 20120509
  19. OXYCODONE [Concomitant]
     Active Substance: OXYCODONE
     Dosage: 5 MG, UNK
     Route: 048
  20. XANAX [Concomitant]
     Active Substance: ALPRAZOLAM
     Dosage: 0.5 MG, TID
     Route: 048
  21. TRASTUZUMAB. [Concomitant]
     Active Substance: TRASTUZUMAB
     Dosage: 507 MG, Q3W
     Route: 065
  22. DOCETAXEL. [Concomitant]
     Active Substance: DOCETAXEL
     Indication: BREAST CANCER
     Dosage: 150 MG, Q3W
     Route: 051
  23. FLONASE [MOMETASONE FUROATE] [Concomitant]
     Dosage: UNK UNK, UNK
     Route: 065
  24. COMPAZINE [PROCHLORPERAZINE MALEATE] [Concomitant]
     Dosage: 1 DF, UNK
     Route: 065
  25. EMLA [LIDOCAINE;PRILOCAINE] [Concomitant]
     Dosage: UNK UNK, UNK
     Route: 061
     Dates: start: 20120326, end: 20130924
  26. VICODIN [Concomitant]
     Active Substance: ACETAMINOPHEN\HYDROCODONE BITARTRATE
     Dosage: 1 DF, UNK
     Route: 048
     Dates: start: 20120620, end: 20130924
  27. CLARITIN [CLARITHROMYCIN] [Concomitant]
     Active Substance: CLARITHROMYCIN
     Dosage: UNK UNK, UNK
     Route: 065

REACTIONS (2)
  - Psychological trauma [Unknown]
  - Alopecia [Recovering/Resolving]

NARRATIVE: CASE EVENT DATE: 20130111
